FAERS Safety Report 7327277-7 (Version None)
Quarter: 2011Q1

REPORT INFORMATION
  Report Type: 
  Country: None (occurrence: None)
  Receive Date: 20110302
  Receipt Date: 20110225
  Transmission Date: 20110831
  Serious: Yes (Life-Threatening, Hospitalization, Disabling, Other)
  Sender: FDA-Public Use
  Company Number: GB-GILEAD-E2B_00001106

PATIENT
  Age: 3 Year
  Sex: Female
  Weight: 10 kg

DRUGS (32)
  1. CHLOROTHIAZIDE [Concomitant]
  2. OSELTAMIVIR [Concomitant]
     Indication: H1N1 INFLUENZA
     Dates: start: 20110114
  3. CIPROFLOXACIN [Concomitant]
  4. DERMOL SOL [Concomitant]
  5. METHYLPREDNISOLONE [Concomitant]
  6. SYTRON [Concomitant]
  7. PROMETHAZINE HYDROCHLORIDE [Concomitant]
  8. OMEPRAZOLE [Concomitant]
  9. FENTANYL [Concomitant]
  10. PARACETAMOL [Concomitant]
  11. POTASSIUM CHLORIDE [Concomitant]
  12. CEFOTAXIME [Concomitant]
  13. AMOXICILLIN [Concomitant]
     Indication: PROPHYLAXIS
  14. ASPIRIN [Concomitant]
  15. SPIRONOLACTONE [Concomitant]
  16. CALCIUM-SANDOZ AMPOULES [Concomitant]
  17. TPN [Concomitant]
     Dosage: CONTINUING
     Dates: start: 20110127
  18. SALBUTAMOL [Concomitant]
  19. IMMUNOGLOBULIN NORMAL [Concomitant]
     Indication: RASH
     Dates: start: 20110205
  20. VISTIDE [Suspect]
     Indication: ADENOVIRUS INFECTION
     Route: 042
     Dates: start: 20110211, end: 20110215
  21. PROBENECID [Suspect]
     Dosage: 500MG/250MG/250MG*
     Route: 048
     Dates: start: 20110111, end: 20110215
  22. DOMPERIDONE [Concomitant]
  23. CHLORAL HYDRATE [Concomitant]
  24. CLINDAMYCIN [Concomitant]
  25. LOPERAMIDE HYDROCHLORIDE [Concomitant]
  26. BECLOMETASONE DIPROPIONATE [Concomitant]
  27. SODIUM FEREDETATE [Concomitant]
  28. MIDAZOLAM HCL [Concomitant]
  29. CEFTAZIDIME PENTAHYDRATE [Concomitant]
  30. TEICOPLANIN [Concomitant]
  31. FUROSEMIDE [Concomitant]
  32. CLENIL MODULITE [Concomitant]

REACTIONS (2)
  - NEUTROPENIA [None]
  - PYREXIA [None]
